FAERS Safety Report 23148076 (Version 1)
Quarter: 2023Q4

REPORT INFORMATION
  Report Type: Spontaneous
  Country: GB (occurrence: GB)
  Receive Date: 20231106
  Receipt Date: 20231106
  Transmission Date: 20240109
  Serious: Yes (Disabling, Other)
  Sender: FDA-Public Use
  Company Number: None

PATIENT

DRUGS (1)
  1. LEVOTHYROXINE [Suspect]
     Active Substance: LEVOTHYROXINE
     Indication: Product used for unknown indication

REACTIONS (15)
  - Migraine [Unknown]
  - Ear pain [Unknown]
  - Erythema [Unknown]
  - Diarrhoea [Unknown]
  - Incontinence [Unknown]
  - Ocular hyperaemia [Unknown]
  - Dementia [Unknown]
  - Pain [Unknown]
  - Chest pain [Unknown]
  - Sinusitis [Unknown]
  - Delusion [Unknown]
  - Memory impairment [Unknown]
  - Cognitive disorder [Unknown]
  - Cardiac disorder [Unknown]
  - Visual impairment [Unknown]
